FAERS Safety Report 8363249-1 (Version None)
Quarter: 2012Q2

REPORT INFORMATION
  Report Type: 
  Country: None (occurrence: None)
  Receive Date: 20120514
  Receipt Date: 20120502
  Transmission Date: 20120825
  Serious: Yes (Hospitalization)
  Sender: FDA-Public Use
  Company Number: 2012-1129

PATIENT
  Age: 72 Year
  Sex: Female

DRUGS (8)
  1. SOMATULINE DEPOT [Suspect]
  2. OCTREOTIDE ACETATE [Concomitant]
  3. PROPRANOLOL [Concomitant]
  4. SOMATULINE DEPOT [Suspect]
     Indication: CARCINOID SYNDROME
     Dosage: 120 MG (120 MG, 1 IN 21 D), SUBCUTANEOUS
     Route: 058
     Dates: start: 20100831
  5. SOMATULINE DEPOT [Suspect]
  6. SOMATULINE DEPOT [Suspect]
  7. NOSE SPRAY FOR ALLERGY (CETIRIZINE HYDROCHLORIDE) [Concomitant]
  8. SYMBICORT [Concomitant]

REACTIONS (8)
  - CONSTIPATION [None]
  - PNEUMONIA [None]
  - VOMITING [None]
  - HEPATIC NEOPLASM MALIGNANT [None]
  - WEIGHT DECREASED [None]
  - MALAISE [None]
  - NEOPLASM PROGRESSION [None]
  - NAUSEA [None]
